FAERS Safety Report 6383905-4 (Version None)
Quarter: 2009Q4

REPORT INFORMATION
  Report Type: 
  Country: None (occurrence: None)
  Receive Date: 20091001
  Receipt Date: 20090925
  Transmission Date: 20100525
  Serious: Yes (Hospitalization)
  Sender: FDA-Public Use
  Company Number: US-AVENTIS-200918574US

PATIENT
  Sex: Male

DRUGS (4)
  1. LOVENOX [Suspect]
     Dosage: DOSE: UNK
     Route: 051
     Dates: start: 20081120, end: 20081122
  2. LOVENOX [Suspect]
     Dosage: DOSE: UNK
     Dates: start: 20090428, end: 20090506
  3. COUMADIN [Suspect]
     Dosage: DOSE: UNK
     Dates: start: 20081101
  4. COUMADIN [Suspect]
     Dosage: DOSE: UNK
     Dates: start: 20090206

REACTIONS (1)
  - CEREBROVASCULAR ACCIDENT [None]
